FAERS Safety Report 25411434 (Version 2)
Quarter: 2025Q4

REPORT INFORMATION
  Report Type: Spontaneous
  Country: US (occurrence: US)
  Receive Date: 20250609
  Receipt Date: 20251029
  Transmission Date: 20260118
  Serious: Yes (Other)
  Sender: COOPERSURGICAL
  Company Number: US-COOPERSURGICAL, INC.-2025CPS004565

PATIENT
  Age: 32 Year
  Sex: Female
  Weight: 68.027 kg

DRUGS (1)
  1. PARAGARD T 380A [Suspect]
     Active Substance: COPPER
     Indication: Contraception
     Dosage: UNK
     Route: 015
     Dates: start: 20080710, end: 20130909

REACTIONS (14)
  - Abortion spontaneous [Recovered/Resolved]
  - Surgery [Recovered/Resolved]
  - Uterine cervical laceration [Not Recovered/Not Resolved]
  - Cervical incompetence [Not Recovered/Not Resolved]
  - Premature labour [Recovered/Resolved]
  - Premature baby [Recovered/Resolved]
  - Reproductive complication associated with device [Unknown]
  - Device breakage [Recovered/Resolved]
  - Foreign body in reproductive tract [Recovered/Resolved]
  - Complication of device removal [Recovered/Resolved]
  - Embedded device [Recovered/Resolved]
  - Emotional distress [Recovered/Resolved]
  - Intermenstrual bleeding [Unknown]
  - Dysmenorrhoea [Unknown]

NARRATIVE: CASE EVENT DATE: 20130903
